FAERS Safety Report 10669700 (Version 1)
Quarter: 2014Q4

REPORT INFORMATION
  Report Type: Spontaneous
  Country: US (occurrence: US)
  Receive Date: 20141222
  Receipt Date: 20141222
  Transmission Date: 20150529
  Serious: Yes (Hospitalization)
  Sender: FDA-Public Use
  Company Number: US-B.I. PHARMACEUTICALS,INC./RIDGEFIELD-2014-BI-61134BP

PATIENT
  Age: 89 Year
  Sex: Female
  Weight: 81.65 kg

DRUGS (15)
  1. VITAMIN D [Concomitant]
     Active Substance: CHOLECALCIFEROL
     Indication: OSTEOPOROSIS
     Dosage: FORMULATION: CAPLET, DOSE PER APPLICATION: 50,000
     Route: 048
     Dates: start: 1990
  2. SPIRIVA [Suspect]
     Active Substance: TIOTROPIUM BROMIDE MONOHYDRATE
     Indication: CHRONIC OBSTRUCTIVE PULMONARY DISEASE
     Dosage: 18 MCG
     Route: 055
     Dates: start: 201410
  3. PREDNISONE. [Concomitant]
     Active Substance: PREDNISONE
     Indication: RESPIRATORY TRACT INFLAMMATION
     Dosage: 10 MG
     Route: 048
     Dates: start: 2006
  4. VITAMIN C [Concomitant]
     Active Substance: ASCORBIC ACID
     Indication: OSTEOPOROSIS
     Dosage: 1000 MG
     Route: 048
     Dates: start: 1990
  5. XANAX [Concomitant]
     Active Substance: ALPRAZOLAM
     Indication: ANXIETY
     Dosage: FORMULATION: CAPLET
     Route: 048
     Dates: start: 1990
  6. IMDUR [Concomitant]
     Active Substance: ISOSORBIDE MONONITRATE
     Indication: CARDIAC DISORDER
     Dosage: 30 MG
     Route: 048
     Dates: start: 2012
  7. TORSEMIDE. [Concomitant]
     Active Substance: TORSEMIDE
     Indication: DIURETIC THERAPY
     Dosage: 30 MG
     Route: 048
     Dates: start: 2012
  8. VENTOLIN HFA [Concomitant]
     Active Substance: ALBUTEROL SULFATE
     Indication: INHALATION THERAPY
     Dosage: FORMULATION: INHALATION AEROSOL
     Route: 055
     Dates: start: 2011
  9. ALBUTEROL/IPRATROPIUM [Concomitant]
     Active Substance: ALBUTEROL\IPRATROPIUM
     Indication: CHRONIC OBSTRUCTIVE PULMONARY DISEASE
     Dosage: FORMULATION: INHALATION AEROSOL; DOSE PER APPLICATION:0.5MCG/3MG/3ML; DAILY DOSE: 2MCG/12MG/12ML
     Route: 055
     Dates: start: 2008
  10. CARTIA XT [Concomitant]
     Active Substance: DILTIAZEM HYDROCHLORIDE
     Indication: CARDIAC DISORDER
     Dosage: 240 MG
     Route: 048
     Dates: start: 2012
  11. SINGULAIR [Concomitant]
     Active Substance: MONTELUKAST SODIUM
     Indication: SINUS CONGESTION
     Dosage: 10 MG
     Route: 048
     Dates: start: 2006
  12. CALCIUM [Concomitant]
     Active Substance: CALCIUM
     Indication: OSTEOPOROSIS
     Dosage: 2000 U
     Route: 048
     Dates: start: 1990
  13. PROTONIX [Concomitant]
     Active Substance: PANTOPRAZOLE SODIUM
     Indication: GASTROOESOPHAGEAL REFLUX DISEASE
     Dosage: 40 MG
     Route: 048
     Dates: start: 2006
  14. CLARITIN [Concomitant]
     Active Substance: LORATADINE
     Indication: SINUS CONGESTION
     Dosage: 10 MG
     Route: 048
     Dates: start: 2006
  15. DULERA [Concomitant]
     Active Substance: FORMOTEROL FUMARATE DIHYDRATE\MOMETASONE FUROATE
     Indication: CHRONIC OBSTRUCTIVE PULMONARY DISEASE
     Dosage: FORMULATION: INHALATION AEROSOL; DOSE PER APPLICATION: 20MCG/5MCG; DAILY DOSE: 40MCG/10MCG
     Route: 055
     Dates: start: 2013

REACTIONS (1)
  - Respiratory distress [Not Recovered/Not Resolved]

NARRATIVE: CASE EVENT DATE: 20141130
